FAERS Safety Report 24344364 (Version 2)
Quarter: 2024Q4

REPORT INFORMATION
  Report Type: Spontaneous
  Country: OM (occurrence: OM)
  Receive Date: 20240920
  Receipt Date: 20241212
  Transmission Date: 20250115
  Serious: Yes (Hospitalization)
  Sender: NOVARTIS
  Company Number: OM-002147023-NVSC2024OM185832

PATIENT
  Age: 4 Year
  Sex: Female
  Weight: 12 kg

DRUGS (2)
  1. COSENTYX [Suspect]
     Active Substance: SECUKINUMAB
     Indication: Psoriasis
     Dosage: 75 MG, QW
     Route: 058
     Dates: start: 20240829
  2. COSENTYX [Suspect]
     Active Substance: SECUKINUMAB
     Indication: Treatment failure

REACTIONS (7)
  - Eczema impetiginous [Not Recovered/Not Resolved]
  - Papule [Unknown]
  - Condition aggravated [Unknown]
  - Pyrexia [Unknown]
  - Nasal obstruction [Unknown]
  - Upper respiratory tract infection [Unknown]
  - Off label use [Unknown]

NARRATIVE: CASE EVENT DATE: 20240912
